FAERS Safety Report 24619902 (Version 3)
Quarter: 2025Q1

REPORT INFORMATION
  Report Type: Spontaneous
  Country: GR (occurrence: GR)
  Receive Date: 20241114
  Receipt Date: 20250319
  Transmission Date: 20250409
  Serious: No
  Sender: JOHNSON AND JOHNSON
  Company Number: GR-JNJFOC-20241123878

PATIENT
  Age: 35 Year
  Sex: Male

DRUGS (1)
  1. TREMFYA [Suspect]
     Active Substance: GUSELKUMAB
     Indication: Psoriasis
     Route: 065

REACTIONS (2)
  - Device deployment issue [Unknown]
  - Product dose omission issue [Unknown]
